FAERS Safety Report 11225831 (Version 2)
Quarter: 2015Q3

REPORT INFORMATION
  Report Type: Spontaneous
  Country: US (occurrence: US)
  Receive Date: 20150629
  Receipt Date: 20150716
  Transmission Date: 20151125
  Serious: Yes (Hospitalization, Other)
  Sender: FDA-Public Use
  Company Number: US-GLAXOSMITHKLINE-US2015GSK089011

PATIENT
  Age: 58 Year
  Sex: Male

DRUGS (1)
  1. TYKERB [Suspect]
     Active Substance: LAPATINIB DITOSYLATE
     Indication: METASTASES TO CENTRAL NERVOUS SYSTEM
     Dosage: 1250 MG, QD
     Route: 048
     Dates: start: 20150101, end: 20150618

REACTIONS (5)
  - Drug resistance [Unknown]
  - Neoplasm progression [Unknown]
  - Drug ineffective [Unknown]
  - Craniotomy [Unknown]
  - Condition aggravated [Unknown]

NARRATIVE: CASE EVENT DATE: 20150529
